FAERS Safety Report 4298821-1 (Version None)
Quarter: 2004Q1

REPORT INFORMATION
  Report Type: 
  Country: None (occurrence: None)
  Receive Date: 20040126
  Receipt Date: 20031030
  Transmission Date: 20041129
  Serious: No
  Sender: FDA-Public Use
  Company Number: USA031051258

PATIENT
  Sex: Male
  Weight: 32 kg

DRUGS (1)
  1. STRATTERA [Suspect]
     Dosage: 50 MG

REACTIONS (3)
  - MIGRAINE [None]
  - PRESCRIBED OVERDOSE [None]
  - VOMITING [None]
